FAERS Safety Report 11435898 (Version 1)
Quarter: 2015Q3

REPORT INFORMATION
  Report Type: Spontaneous
  Country: US (occurrence: US)
  Receive Date: 20150821
  Receipt Date: 20150821
  Transmission Date: 20151125
  Serious: No
  Sender: FDA-Public Use
  Company Number: US-ELI_LILLY_AND_COMPANY-US201401008519

PATIENT
  Sex: Female

DRUGS (4)
  1. HUMULIN N [Suspect]
     Active Substance: INSULIN HUMAN
     Dosage: 1 DF, EACH EVENING
     Route: 058
     Dates: start: 201312
  2. HUMULIN R [Concomitant]
     Active Substance: INSULIN HUMAN
     Indication: PRODUCT USED FOR UNKNOWN INDICATION
     Dosage: 1 DF, EACH MORNING
     Route: 058
  3. HUMULIN N [Suspect]
     Active Substance: INSULIN HUMAN
     Indication: DIABETES MELLITUS
     Dosage: 90 IU, UNKNOWN
     Route: 058
     Dates: start: 201312
  4. HUMULIN N [Suspect]
     Active Substance: INSULIN HUMAN
     Dosage: 1 DF, EACH EVENING
     Route: 058
     Dates: start: 201312

REACTIONS (4)
  - Confusional state [Unknown]
  - Blood glucose increased [Unknown]
  - Fear [Unknown]
  - Incorrect dose administered [Unknown]
